FAERS Safety Report 5771095-8 (Version None)
Quarter: 2008Q2

REPORT INFORMATION
  Report Type: 
  Country: None (occurrence: None)
  Receive Date: 20080613
  Receipt Date: 20080523
  Transmission Date: 20081010
  Serious: No
  Sender: FDA-Public Use
  Company Number: US-ABBOTT-08P-163-0453362-00

PATIENT

DRUGS (4)
  1. HUMIRA [Suspect]
     Indication: RHEUMATOID ARTHRITIS
     Route: 050
     Dates: start: 20080101
  2. HUMIRA [Suspect]
     Indication: ANKYLOSING SPONDYLITIS
  3. METHOTREXATE [Concomitant]
     Indication: RHEUMATOID ARTHRITIS
     Route: 048
     Dates: start: 20040101
  4. METHOTREXATE [Concomitant]
     Indication: ANKYLOSING SPONDYLITIS

REACTIONS (3)
  - ACCIDENTAL EXPOSURE [None]
  - INJECTION SITE HAEMORRHAGE [None]
  - PAIN IN EXTREMITY [None]
